FAERS Safety Report 25176223 (Version 1)
Quarter: 2025Q2

REPORT INFORMATION
  Report Type: Spontaneous
  Country: RO (occurrence: RO)
  Receive Date: 20250409
  Receipt Date: 20250409
  Transmission Date: 20250717
  Serious: Yes (Death)
  Sender: BIOGEN
  Company Number: RO-BIOGEN-2025BI01306851

PATIENT
  Age: 6 Year
  Sex: Female
  Weight: 11 kg

DRUGS (1)
  1. SPINRAZA [Suspect]
     Active Substance: NUSINERSEN
     Indication: Spinal muscular atrophy
     Dosage: TOTAL OF 21 DOSES
     Route: 050
     Dates: start: 20190117, end: 20241105

REACTIONS (2)
  - Death [Fatal]
  - Road traffic accident [Recovered/Resolved]

NARRATIVE: CASE EVENT DATE: 20230401
